FAERS Safety Report 9493459 (Version 2)
Quarter: 2013Q3

REPORT INFORMATION
  Report Type: Spontaneous
  Country: US (occurrence: US)
  Receive Date: 20130902
  Receipt Date: 20130916
  Transmission Date: 20140515
  Serious: Yes (Other)
  Sender: FDA-Public Use
  Company Number: US-PFIZER INC-2013250222

PATIENT
  Age: 68 Year
  Sex: Female
  Weight: 95.24 kg

DRUGS (3)
  1. GABAPENTIN [Suspect]
     Indication: DIABETIC NEUROPATHY
     Dosage: 300 MG, 3X/DAY
     Route: 048
     Dates: start: 201306
  2. GABAPENTIN [Suspect]
     Indication: NEURALGIA
  3. HYDROCODONE [Concomitant]
     Indication: PAIN
     Dosage: UNK

REACTIONS (7)
  - Ankle fracture [Unknown]
  - Foot fracture [Unknown]
  - Drug ineffective [Unknown]
  - Fall [Unknown]
  - Back injury [Unknown]
  - Pain [Unknown]
  - Injury [Unknown]
